FAERS Safety Report 7073090-8 (Version None)
Quarter: 2010Q4

REPORT INFORMATION
  Report Type: 
  Country: None (occurrence: None)
  Receive Date: 20101029
  Receipt Date: 20100422
  Transmission Date: 20110411
  Serious: No
  Sender: FDA-Public Use
  Company Number: A0856343A

PATIENT
  Age: 80 Year
  Sex: Female

DRUGS (5)
  1. ADVAIR DISKUS 100/50 [Suspect]
     Indication: PNEUMONIA
     Dosage: 1PUFF TWICE PER DAY
     Route: 055
     Dates: start: 20100412, end: 20100421
  2. PREDNISONE [Concomitant]
  3. LEVAQUIN [Concomitant]
  4. CENTRUM SILVER [Concomitant]
  5. CALCIUM [Concomitant]

REACTIONS (5)
  - AGEUSIA [None]
  - GLOSSITIS [None]
  - ORAL DISCOMFORT [None]
  - ORAL PAIN [None]
  - STOMATITIS [None]
